FAERS Safety Report 9760463 (Version 1)
Quarter: 2013Q4

REPORT INFORMATION
  Report Type: Spontaneous
  Country: US (occurrence: US)
  Receive Date: 20131216
  Receipt Date: 20131216
  Transmission Date: 20140711
  Serious: Yes (Other)
  Sender: FDA-Public Use
  Company Number: US-BRISTOL-MYERS SQUIBB COMPANY-19895093

PATIENT
  Age: 79 Year
  Sex: Female
  Weight: 86.17 kg

DRUGS (12)
  1. ELIQUIS [Suspect]
     Indication: ATRIAL FIBRILLATION
  2. CALCIUM + VITAMIN D [Concomitant]
     Dosage: OTC
  3. MULTIVITAMIN [Concomitant]
  4. SPIRIVA [Concomitant]
     Route: 055
  5. CRESTOR [Concomitant]
  6. ZETIA [Concomitant]
  7. OMEPRAZOLE [Concomitant]
  8. HCTZ [Concomitant]
  9. POTASSIUM [Concomitant]
  10. LORAZEPAM [Concomitant]
  11. CITALOPRAM [Concomitant]
  12. DILTIAZEM ER [Concomitant]

REACTIONS (1)
  - Shoulder operation [Unknown]
